FAERS Safety Report 4961739-2 (Version None)
Quarter: 2006Q2

REPORT INFORMATION
  Report Type: 
  Country: None (occurrence: None)
  Receive Date: 20060404
  Receipt Date: 20060222
  Transmission Date: 20061013
  Serious: Yes (Hospitalization)
  Sender: FDA-Public Use
  Company Number: GB-BRISTOL-MYERS SQUIBB COMPANY-13291943

PATIENT
  Age: 82 Year
  Sex: Male

DRUGS (6)
  1. KENALOG-40 [Suspect]
     Indication: SURGERY
     Route: 014
     Dates: start: 20060127, end: 20060127
  2. MARCAINE [Suspect]
     Indication: SURGERY
     Route: 014
     Dates: start: 20060127, end: 20060127
  3. BENDROFLUMETHIAZIDE [Concomitant]
     Indication: HYPERTENSION
     Route: 048
  4. DOXAZOSIN [Concomitant]
     Indication: HYPERTENSION
     Route: 048
  5. WARFARIN [Concomitant]
     Indication: ATRIAL FIBRILLATION
     Route: 048
  6. ENOXAPARIN SODIUM [Concomitant]
     Indication: ATRIAL FIBRILLATION
     Route: 058
     Dates: start: 20060126

REACTIONS (3)
  - AFFECT LABILITY [None]
  - CONFUSIONAL STATE [None]
  - DISORIENTATION [None]
